FAERS Safety Report 23062412 (Version 3)
Quarter: 2023Q4

REPORT INFORMATION
  Report Type: Report from Study
  Country: US (occurrence: None)
  Receive Date: 20231013
  Receipt Date: 20231030
  Transmission Date: 20240110
  Serious: Yes (Other)
  Sender: FDA-Public Use
  Company Number: US-ROCHE-2971076

PATIENT
  Age: 62 Year
  Sex: Female
  Weight: 83 kg

DRUGS (85)
  1. RANIBIZUMAB [Suspect]
     Active Substance: RANIBIZUMAB
     Indication: Diabetic retinal oedema
     Dosage: START DATE OF MOST RECENT DOSE OF STUDY DRUG PRIOR TO AE 10/NOV/2021, 04/MAY/2022, 10/OCT/2022, 19/O
     Route: 050
     Dates: start: 20200820
  2. RANIBIZUMAB [Suspect]
     Active Substance: RANIBIZUMAB
  3. RANIBIZUMAB [Suspect]
     Active Substance: RANIBIZUMAB
  4. ENSTILAR [Concomitant]
     Active Substance: BETAMETHASONE DIPROPIONATE\CALCIPOTRIENE HYDRATE
     Indication: Psoriasis
     Dates: start: 202006
  5. CHONDROITIN SULFATE (BOVINE)\GLUCOSAMINE HYDROCHLORIDE [Concomitant]
     Active Substance: CHONDROITIN SULFATE (BOVINE)\GLUCOSAMINE HYDROCHLORIDE
     Dates: start: 202003
  6. FENOFIBRATE [Concomitant]
     Active Substance: FENOFIBRATE
     Indication: Hypercholesterolaemia
     Dates: start: 202003
  7. LISINOPRIL [Concomitant]
     Active Substance: LISINOPRIL
     Indication: Hypertension
     Dates: start: 201903
  8. GLIPIZIDE [Concomitant]
     Active Substance: GLIPIZIDE
     Indication: Type 2 diabetes mellitus
     Dates: start: 2008
  9. NOVOLIN N [Concomitant]
     Active Substance: INSULIN HUMAN
     Indication: Type 2 diabetes mellitus
     Dates: start: 202003
  10. HUMIRA [Concomitant]
     Active Substance: ADALIMUMAB
     Indication: Psoriasis
     Dates: start: 20200610
  11. TYLENOL [Concomitant]
     Active Substance: ACETAMINOPHEN
     Dates: start: 20201126, end: 20220120
  12. TYLENOL [Concomitant]
     Active Substance: ACETAMINOPHEN
     Dates: start: 20211111
  13. TYLENOL [Concomitant]
     Active Substance: ACETAMINOPHEN
     Dates: start: 202112
  14. TYLENOL [Concomitant]
     Active Substance: ACETAMINOPHEN
     Dosage: 650 OTHER
     Route: 048
     Dates: start: 20231010
  15. ACETAMINOPHEN\OXYCODONE HYDROCHLORIDE [Concomitant]
     Active Substance: ACETAMINOPHEN\OXYCODONE HYDROCHLORIDE
     Indication: Osteoarthritis
     Dates: start: 20210625, end: 20211020
  16. MELOXICAM [Concomitant]
     Active Substance: MELOXICAM
     Indication: Osteoarthritis
     Dates: start: 20210625, end: 20211020
  17. ASPIRIN [Concomitant]
     Active Substance: ASPIRIN
     Indication: Osteoarthritis
     Dates: start: 20210625, end: 20211020
  18. ASPIRIN [Concomitant]
     Active Substance: ASPIRIN
     Indication: Acute myocardial infarction
     Dates: start: 20221205, end: 20230106
  19. ASPIRIN [Concomitant]
     Active Substance: ASPIRIN
     Dates: start: 20221205
  20. ASPIRIN [Concomitant]
     Active Substance: ASPIRIN
     Dates: start: 20230112
  21. ASPIRIN [Concomitant]
     Active Substance: ASPIRIN
     Dosage: DOSE: 81 OTHER
     Route: 048
     Dates: start: 20231009, end: 20231009
  22. TOBRAMYCIN [Concomitant]
     Active Substance: TOBRAMYCIN
     Dates: start: 20211109, end: 20211207
  23. TOBRAMYCIN [Concomitant]
     Active Substance: TOBRAMYCIN
     Dates: start: 20220504, end: 20220507
  24. TOBRAMYCIN [Concomitant]
     Active Substance: TOBRAMYCIN
     Dates: start: 20220425, end: 20220428
  25. TOBRAMYCIN [Concomitant]
     Active Substance: TOBRAMYCIN
     Dates: start: 20220802, end: 20220803
  26. PREDNISOLONE [Concomitant]
     Active Substance: PREDNISOLONE
     Dates: start: 20211111, end: 20211227
  27. PREDNISOLONE [Concomitant]
     Active Substance: PREDNISOLONE
     Dates: start: 20221021, end: 20221114
  28. VARICELLA-ZOSTER VACCINE NOS [Concomitant]
     Active Substance: VARICELLA-ZOSTER VACCINE
     Dates: start: 20211126, end: 20211126
  29. MOTRIN [Concomitant]
     Active Substance: IBUPROFEN
     Dates: start: 20211207, end: 20220120
  30. RANIBIZUMAB [Concomitant]
     Active Substance: RANIBIZUMAB
     Dosage: FELLOW EYE?DOSE OF STUDY DRUG FIRST ADMINISTERED 6 MG/ML?DOSE LAST STUDY DRUG ADMIN PRIOR AE AND SAE
     Route: 050
     Dates: start: 20200820
  31. INFLUENZA VIRUS VACCINE [Concomitant]
     Active Substance: INFLUENZA VIRUS VACCINE
     Indication: Antiviral prophylaxis
     Dates: start: 20211105, end: 20211105
  32. VITAMIN D3 [Concomitant]
     Active Substance: CHOLECALCIFEROL
     Indication: Vitamin D deficiency
     Dates: start: 202112
  33. PAXIL [Concomitant]
     Active Substance: PAROXETINE HYDROCHLORIDE
     Indication: Depression
     Dates: start: 20220915
  34. PAXIL [Concomitant]
     Active Substance: PAROXETINE HYDROCHLORIDE
     Indication: Anxiety
  35. TOBRADEX [Concomitant]
     Active Substance: DEXAMETHASONE\TOBRAMYCIN
     Dates: start: 20221020, end: 20221021
  36. TOBRADEX [Concomitant]
     Active Substance: DEXAMETHASONE\TOBRAMYCIN
     Dates: start: 20230112, end: 20230125
  37. TOBRADEX [Concomitant]
     Active Substance: DEXAMETHASONE\TOBRAMYCIN
     Dates: start: 20230504
  38. TOBRADEX [Concomitant]
     Active Substance: DEXAMETHASONE\TOBRAMYCIN
     Dates: start: 20230501, end: 20230626
  39. AMLODIPINE [Concomitant]
     Active Substance: AMLODIPINE BESYLATE
     Indication: Hypertension
     Dosage: 10 OTHER
     Route: 048
     Dates: start: 20221205, end: 20221205
  40. AMLODIPINE [Concomitant]
     Active Substance: AMLODIPINE BESYLATE
     Indication: Chest pain
     Dosage: 5 OTHER
     Route: 048
     Dates: start: 20221221
  41. HYDRALAZINE [Concomitant]
     Active Substance: HYDRALAZINE HYDROCHLORIDE
     Indication: Hypertension
     Dosage: 50 OTHER
     Route: 048
     Dates: start: 20221203
  42. HYDRALAZINE [Concomitant]
     Active Substance: HYDRALAZINE HYDROCHLORIDE
     Indication: Hypertension
  43. ACETAMINOPHEN [Concomitant]
     Active Substance: ACETAMINOPHEN
     Indication: Chest pain
     Dosage: 650 OTHER
     Route: 048
     Dates: start: 20221203, end: 20221205
  44. ACETAMINOPHEN [Concomitant]
     Active Substance: ACETAMINOPHEN
     Indication: Hypertension
  45. PLAVIX [Concomitant]
     Active Substance: CLOPIDOGREL BISULFATE
     Dates: start: 20221205
  46. HEPARIN SODIUM IN DEXTROSE [Concomitant]
     Active Substance: HEPARIN SODIUM
     Dates: start: 20221204, end: 20221205
  47. LEVEMIR [Concomitant]
     Active Substance: INSULIN DETEMIR
     Indication: Diabetes mellitus
     Dates: start: 20221204, end: 20221205
  48. NITROGLYCERIN [Concomitant]
     Active Substance: NITROGLYCERIN
     Dosage: 1 U
     Route: 061
     Dates: start: 20221203, end: 20221205
  49. METOPROLOL TARTRATE [Concomitant]
     Active Substance: METOPROLOL TARTRATE
     Indication: Hypertension
     Dosage: 25 OTHER
     Route: 048
     Dates: start: 20221203, end: 20221205
  50. MAGNESIUM OXIDE [Concomitant]
     Active Substance: MAGNESIUM OXIDE
     Indication: Hypertension
     Dosage: 400 OTHER
     Route: 048
     Dates: start: 20221204, end: 20221205
  51. NOVOLOG [Concomitant]
     Active Substance: INSULIN ASPART
     Indication: Diabetes mellitus
     Dates: start: 20221205, end: 20221205
  52. POTASSIUM CHLORIDE [Concomitant]
     Active Substance: POTASSIUM CHLORIDE
     Indication: COVID-19
     Dates: start: 20221204, end: 20221204
  53. POTASSIUM CHLORIDE [Concomitant]
     Active Substance: POTASSIUM CHLORIDE
     Indication: Hypokalaemia
     Dates: start: 20231009, end: 20231009
  54. POTASSIUM CHLORIDE [Concomitant]
     Active Substance: POTASSIUM CHLORIDE
     Dates: start: 20231009, end: 20231011
  55. MAGNESIUM SULFATE [Concomitant]
     Active Substance: MAGNESIUM SULFATE\MAGNESIUM SULFATE HEPTAHYDRATE
     Dates: start: 20221204, end: 20221204
  56. ENOXAPARIN [Concomitant]
     Active Substance: ENOXAPARIN
     Dates: start: 20221203, end: 20221203
  57. SODIUM CHLORIDE [Concomitant]
     Active Substance: SODIUM CHLORIDE
     Indication: COVID-19
     Dates: start: 20221203
  58. SODIUM CHLORIDE [Concomitant]
     Active Substance: SODIUM CHLORIDE
     Indication: Hypokalaemia
     Route: 041
     Dates: start: 20231009, end: 20231009
  59. BENZOCAINE-MENTHOL [Concomitant]
     Indication: COVID-19
     Dates: start: 20221203, end: 202301
  60. BENZOCAINE-MENTHOL [Concomitant]
     Indication: Oral pain
  61. BENZOCAINE-MENTHOL [Concomitant]
     Indication: Vomiting
  62. CALCIUM CARBONATE [Concomitant]
     Active Substance: CALCIUM CARBONATE
     Indication: COVID-19
     Dates: start: 20221203, end: 202301
  63. GUAIFENESIN [Concomitant]
     Active Substance: GUAIFENESIN
     Indication: COVID-19
     Dates: start: 20221203
  64. ONDANSETRON [Concomitant]
     Active Substance: ONDANSETRON
     Indication: COVID-19
     Dates: start: 20221203, end: 20221203
  65. ONDANSETRON [Concomitant]
     Active Substance: ONDANSETRON
     Indication: Nausea
  66. PNEUMOCOCCAL VACCINE POLYVALENT NOS [Concomitant]
     Active Substance: PNEUMOCOCCAL VACCINE POLYVALENT
     Indication: Infection prophylaxis
     Dates: start: 20220621, end: 20220621
  67. ALEVE [Concomitant]
     Active Substance: NAPROXEN SODIUM
     Route: 048
     Dates: start: 20230112, end: 20230113
  68. DICLOFENAC [Concomitant]
     Active Substance: DICLOFENAC
     Indication: Rib fracture
     Dates: start: 20230117
  69. LUCENTIS [Concomitant]
     Active Substance: RANIBIZUMAB
     Indication: Diabetic retinal oedema
     Dates: start: 20230501, end: 20230501
  70. LUCENTIS [Concomitant]
     Active Substance: RANIBIZUMAB
     Dosage: DOSE: 6 MG/ML
     Route: 050
     Dates: start: 20230531, end: 20230531
  71. VABYSMO [Concomitant]
     Active Substance: FARICIMAB\FARICIMAB-SVOA
     Indication: Diabetic retinal oedema
     Dates: start: 20230816, end: 20230816
  72. VABYSMO [Concomitant]
     Active Substance: FARICIMAB\FARICIMAB-SVOA
     Dates: start: 20230705, end: 20230705
  73. VABYSMO [Concomitant]
     Active Substance: FARICIMAB\FARICIMAB-SVOA
     Route: 050
     Dates: start: 20230914, end: 20230914
  74. METFORMIN HYDROCHLORIDE [Concomitant]
     Active Substance: METFORMIN HYDROCHLORIDE
     Indication: Type 2 diabetes mellitus
     Dates: start: 2008
  75. CARVEDILOL [Concomitant]
     Active Substance: CARVEDILOL
     Indication: Hypertension
     Dosage: 12.5 OTHER
     Route: 048
     Dates: start: 20221203
  76. HEPARIN [Concomitant]
     Active Substance: HEPARIN SODIUM
     Indication: Acute myocardial infarction
     Route: 042
     Dates: start: 20231010, end: 20231011
  77. HUMALOG [Concomitant]
     Active Substance: INSULIN LISPRO
     Indication: Type 2 diabetes mellitus
     Dates: start: 20231010
  78. KETOROLAC [Concomitant]
     Active Substance: KETOROLAC TROMETHAMINE
     Dosage: DOSE-15 MG/ML
     Route: 042
     Dates: start: 20231010, end: 20231012
  79. DEXTROSE [Concomitant]
     Active Substance: DEXTROSE\DEXTROSE MONOHYDRATE
     Indication: Hypoglycaemia
     Dates: start: 20231010, end: 20231010
  80. GLUCAGON [Concomitant]
     Active Substance: GLUCAGON\GLUCAGON HYDROCHLORIDE\WATER
     Indication: Hypoglycaemia
     Dates: start: 20231010, end: 20231010
  81. DEXTROSE [Concomitant]
     Active Substance: DEXTROSE\DEXTROSE MONOHYDRATE
     Indication: Hypoglycaemia
     Dates: start: 20231010, end: 20231010
  82. MORPHINE SULFATE [Concomitant]
     Active Substance: MORPHINE SULFATE
     Dosage: 1 MG/ML
     Route: 042
     Dates: start: 20231011, end: 20231011
  83. PANTOPRAZOLE [Concomitant]
     Active Substance: PANTOPRAZOLE
     Indication: Gastrooesophageal reflux disease
     Dates: start: 20231012, end: 20231012
  84. MAGNESIUM [Concomitant]
     Active Substance: MAGNESIUM
     Indication: Hypertension
     Route: 042
     Dates: start: 20231011, end: 20231011
  85. ZOFRAN [Concomitant]
     Active Substance: ONDANSETRON HYDROCHLORIDE
     Indication: Nausea
     Dates: start: 20231023, end: 20231023

REACTIONS (4)
  - Conjunctival retraction [Recovered/Resolved]
  - Vitreous haemorrhage [Recovered/Resolved]
  - Conjunctival bleb [Recovered/Resolved]
  - Conjunctival retraction [Not Recovered/Not Resolved]

NARRATIVE: CASE EVENT DATE: 20211110
